FAERS Safety Report 6501971-X (Version None)
Quarter: 2009Q4

REPORT INFORMATION
  Report Type: 
  Country: None (occurrence: None)
  Receive Date: 20091216
  Receipt Date: 20091207
  Transmission Date: 20100525
  Serious: Yes (Other)
  Sender: FDA-Public Use
  Company Number: PHHY2009IT54144

PATIENT
  Sex: Female

DRUGS (1)
  1. CARTEOLOL HYDROCHLORIDE [Suspect]
     Indication: OCULAR HYPERTENSION
     Dosage: 1 GTT, OU/DAY
     Dates: start: 20081101, end: 20090301

REACTIONS (1)
  - ASTHMA [None]
